FAERS Safety Report 9161316 (Version 1)
Quarter: 2013Q1

REPORT INFORMATION
  Report Type: Spontaneous
  Country: US (occurrence: US)
  Receive Date: 20130313
  Receipt Date: 20130313
  Transmission Date: 20140127
  Serious: No
  Sender: FDA-Public Use
  Company Number: US-009507513-1303USA006238

PATIENT
  Sex: Female

DRUGS (2)
  1. CLARITIN [Suspect]
     Indication: ARTHROPOD BITE
     Dosage: 10 MG, ONCE
     Route: 048
     Dates: start: 20130223
  2. CLARITIN [Suspect]
     Indication: MEDICAL OBSERVATION
     Dosage: 10 MG, ONCE
     Route: 048
     Dates: start: 20130224

REACTIONS (3)
  - Gait disturbance [Recovering/Resolving]
  - Overdose [Unknown]
  - Off label use [Unknown]
